FAERS Safety Report 7214520-8 (Version None)
Quarter: 2011Q1

REPORT INFORMATION
  Report Type: 
  Country: None (occurrence: None)
  Receive Date: 20110107
  Receipt Date: 20101231
  Transmission Date: 20110831
  Serious: Yes (Other)
  Sender: FDA-Public Use
  Company Number: DE-B.I. PHARMACEUTICALS,INC./RIDGEFIELD-2011-DE-00089DE

PATIENT
  Sex: Female

DRUGS (5)
  1. CLONIDINE [Suspect]
     Indication: BLOOD PRESSURE
     Route: 048
  2. NEPRESOL [Suspect]
     Indication: BLOOD PRESSURE
  3. BELOC [Suspect]
     Indication: BLOOD PRESSURE
  4. BISOPROLOL [Suspect]
     Indication: BLOOD PRESSURE
  5. ATACAND [Suspect]
     Indication: BLOOD PRESSURE

REACTIONS (1)
  - BLOOD PRESSURE INCREASED [None]
